FAERS Safety Report 8784866 (Version 1)
Quarter: 2012Q4

REPORT INFORMATION
  Report Type: 
  Country: US (occurrence: US)
  Receive Date: 20120914
  Receipt Date: 20120914
  Transmission Date: 20130627
  Serious: No
  Sender: FDA-Public Use
  Company Number: US-B.I. PHARMACEUTICALS,INC./RIDGEFIELD-2012-BP-22398BP

PATIENT
  Sex: Female

DRUGS (2)
  1. MICARDIS [Suspect]
     Route: 048
     Dates: start: 201009, end: 201207
  2. LISINOPRIL [Concomitant]

REACTIONS (1)
  - Oedema peripheral [Unknown]
